FAERS Safety Report 25044248 (Version 1)
Quarter: 2025Q1

REPORT INFORMATION
  Report Type: Spontaneous
  Country: FR (occurrence: FR)
  Receive Date: 20250306
  Receipt Date: 20250306
  Transmission Date: 20250409
  Serious: Yes (Other)
  Sender: ALK-ABELLO
  Company Number: FR-ALK-ABELLO A/S-2025AA000812

PATIENT

DRUGS (2)
  1. GRAZAX [Suspect]
     Active Substance: PHLEUM PRATENSE POLLEN
     Indication: Immune tolerance induction
     Route: 060
     Dates: start: 20250201, end: 20250215
  2. BETULA PENDULA POLLEN [Concomitant]
     Active Substance: BETULA PENDULA POLLEN
     Dates: start: 20241101

REACTIONS (5)
  - Paraesthesia oral [Recovered/Resolved]
  - Dysphagia [Recovered/Resolved]
  - Tongue oedema [Recovered/Resolved]
  - Dyspnoea [Recovered/Resolved]
  - Toothache [Recovered/Resolved]

NARRATIVE: CASE EVENT DATE: 20250201
